FAERS Safety Report 7417266-6 (Version None)
Quarter: 2011Q2

REPORT INFORMATION
  Report Type: 
  Country: None (occurrence: None)
  Receive Date: 20110415
  Receipt Date: 20110413
  Transmission Date: 20111010
  Serious: Yes (Death)
  Sender: FDA-Public Use
  Company Number: US-JNJFOC-20110405950

PATIENT
  Age: 29 Year
  Sex: Male

DRUGS (7)
  1. VISTARIL [Concomitant]
  2. ZYPREXA [Concomitant]
     Route: 048
  3. FANAPT [Concomitant]
     Route: 048
  4. PROVIGIL [Concomitant]
     Route: 048
  5. SEROQUEL [Concomitant]
     Route: 048
  6. SEROQUEL XR [Concomitant]
  7. INVEGA SUSTENNA [Suspect]
     Indication: SCHIZOPHRENIA, UNDIFFERENTIATED TYPE
     Route: 030

REACTIONS (1)
  - COMPLETED SUICIDE [None]
